FAERS Safety Report 22070092 (Version 1)
Quarter: 2023Q1

REPORT INFORMATION
  Report Type: Spontaneous
  Country: US (occurrence: US)
  Receive Date: 20230307
  Receipt Date: 20230307
  Transmission Date: 20230418
  Serious: No
  Sender: FDA-Public Use
  Company Number: US-SA-SAC20230302001640

PATIENT
  Sex: Male

DRUGS (4)
  1. DUPIXENT [Suspect]
     Active Substance: DUPILUMAB
     Indication: Dermatitis atopic
     Dosage: 300 MG, QOW
     Route: 058
  2. BISACODYL [Concomitant]
     Active Substance: BISACODYL
  3. HYDROCODONE [Concomitant]
     Active Substance: HYDROCODONE
  4. TAMSULOSIN [Concomitant]
     Active Substance: TAMSULOSIN

REACTIONS (2)
  - Productive cough [Not Recovered/Not Resolved]
  - Hypersensitivity [Not Recovered/Not Resolved]
